FAERS Safety Report 19472208 (Version 1)
Quarter: 2021Q2

REPORT INFORMATION
  Report Type: Spontaneous
  Country: US (occurrence: US)
  Receive Date: 20210629
  Receipt Date: 20210629
  Transmission Date: 20210717
  Serious: Yes (Other)
  Sender: FDA-Public Use
  Company Number: None

PATIENT
  Age: 72 Year
  Sex: Female
  Weight: 109.8 kg

DRUGS (14)
  1. RAMIPRIL. [Concomitant]
     Active Substance: RAMIPRIL
  2. ROSUVASTATIN. [Concomitant]
     Active Substance: ROSUVASTATIN
  3. VITAMIN D3 [Concomitant]
     Active Substance: CHOLECALCIFEROL
  4. GLIPIZIDE. [Concomitant]
     Active Substance: GLIPIZIDE
  5. LASIX [Concomitant]
     Active Substance: FUROSEMIDE
  6. ACETAMINOPHEN ES [Concomitant]
  7. TRAMADOL. [Concomitant]
     Active Substance: TRAMADOL
  8. ASPIRIN. [Concomitant]
     Active Substance: ASPIRIN
  9. LANSOPRAZOLE. [Concomitant]
     Active Substance: LANSOPRAZOLE
  10. JANUMET XR [Concomitant]
     Active Substance: METFORMIN HYDROCHLORIDE\SITAGLIPTIN PHOSPHATE
  11. ATENOLOL. [Concomitant]
     Active Substance: ATENOLOL
  12. PAROXETINE. [Concomitant]
     Active Substance: PAROXETINE
  13. IMATINIB. [Suspect]
     Active Substance: IMATINIB MESYLATE
     Indication: GASTROINTESTINAL STROMAL TUMOUR
     Route: 048
     Dates: start: 20210126
  14. AMLODIPINE [Concomitant]
     Active Substance: AMLODIPINE BESYLATE

REACTIONS (1)
  - Alopecia [None]

NARRATIVE: CASE EVENT DATE: 20210629
